FAERS Safety Report 4963594-3 (Version None)
Quarter: 2006Q1

REPORT INFORMATION
  Report Type: 
  Country: None (occurrence: None)
  Receive Date: 20060330
  Receipt Date: 20060322
  Transmission Date: 20060701
  Serious: Yes (Hospitalization)
  Sender: FDA-Public Use
  Company Number: HQWYE457923JAN06

PATIENT
  Age: 64 Year
  Sex: Male

DRUGS (4)
  1. CORDARONE [Suspect]
     Dosage: ORAL
     Route: 048
  2. LASIX [Suspect]
     Dosage: 250 MG 1X PER 1 DAY
  3. RIFAMPICIN [Suspect]
     Indication: MEDIASTINITIS
     Dosage: 2.4 G 1X PER 1 DAY, INTRAVENOUS
     Route: 042
     Dates: start: 20050921, end: 20051004
  4. VANCOMYCIN [Suspect]
     Indication: MEDIASTINITIS
     Dosage: 3 G 1X PER 1 DAY, INTRAVENOUS
     Route: 042
     Dates: start: 20050917, end: 20051004

REACTIONS (3)
  - BLOOD ALKALINE PHOSPHATASE INCREASED [None]
  - GAMMA-GLUTAMYLTRANSFERASE INCREASED [None]
  - JAUNDICE [None]
